FAERS Safety Report 5807585-9 (Version None)
Quarter: 2008Q3

REPORT INFORMATION
  Report Type: 
  Country: None (occurrence: None)
  Receive Date: 20080711
  Receipt Date: 20041130
  Transmission Date: 20090109
  Serious: Yes (Hospitalization)
  Sender: FDA-Public Use
  Company Number: US-BAXTER-2007BH009869

PATIENT
  Age: 20 Year
  Sex: Female
  Weight: 63 kg

DRUGS (2)
  1. SODIUM CHLORIDE 0.9% IN PLASTIC CONTAINER [Suspect]
     Indication: PLASMAPHERESIS
     Dosage: DOSE UNIT:UNKNOWN
     Route: 042
     Dates: start: 20041129, end: 20041129
  2. ANTICOAGULANT SODIUM CITRATE SOLUTION [Suspect]
     Indication: PLASMAPHERESIS
     Dosage: DOSE UNIT:UNKNOWN
     Route: 042
     Dates: start: 20041129, end: 20041129

REACTIONS (10)
  - ARTHRALGIA [None]
  - FALL [None]
  - HEAD INJURY [None]
  - HYPOAESTHESIA [None]
  - MUSCULOSKELETAL PAIN [None]
  - NAUSEA [None]
  - PALLOR [None]
  - POST-TRAUMATIC HEADACHE [None]
  - SYNCOPE [None]
  - VOMITING [None]
